FAERS Safety Report 9310242 (Version 35)
Quarter: 2019Q2

REPORT INFORMATION
  Report Type: Report from Study
  Country: CA (occurrence: CA)
  Receive Date: 20130527
  Receipt Date: 20190425
  Transmission Date: 20190711
  Serious: Yes (Hospitalization, Other)
  Sender: FDA-Public Use
  Company Number: PHHY2012CA101504

PATIENT
  Age: 77 Year
  Sex: Female

DRUGS (6)
  1. SANDOSTATIN LAR DEPOT [Suspect]
     Active Substance: OCTREOTIDE ACETATE
     Indication: ANGIODYSPLASIA
     Dosage: 10 MG, QMO
     Route: 030
     Dates: start: 20120610, end: 20120831
  2. SANDOSTATIN LAR DEPOT [Suspect]
     Active Substance: OCTREOTIDE ACETATE
     Dosage: 20 MG, QMO (EVERY 4 WEEKS)
     Route: 030
     Dates: start: 20121016, end: 20121028
  3. SANDOSTATIN LAR DEPOT [Suspect]
     Active Substance: OCTREOTIDE ACETATE
     Dosage: 30 MG, QMO
     Route: 030
     Dates: start: 20141222
  4. SANDOSTATIN [Suspect]
     Active Substance: OCTREOTIDE ACETATE
     Indication: ANGIODYSPLASIA
     Dosage: UNK
     Route: 058
     Dates: start: 20120530, end: 2012
  5. METOPROLOL. [Suspect]
     Active Substance: METOPROLOL
     Indication: PRODUCT USED FOR UNKNOWN INDICATION
     Route: 065
  6. SANDOSTATIN LAR DEPOT [Suspect]
     Active Substance: OCTREOTIDE ACETATE
     Dosage: 20 MG, QMO
     Route: 030
     Dates: start: 20120906

REACTIONS (19)
  - Haemoglobin decreased [Unknown]
  - Aphonia [Not Recovered/Not Resolved]
  - Tachycardia [Unknown]
  - Injection site pain [Unknown]
  - Product use in unapproved indication [Unknown]
  - Blood pressure systolic increased [Unknown]
  - Breast cancer [Unknown]
  - Muscle spasms [Recovered/Resolved]
  - Burning sensation [Unknown]
  - Hot flush [Unknown]
  - Dyspnoea [Unknown]
  - Cystitis [Unknown]
  - Fatigue [Unknown]
  - Pruritus [Unknown]
  - Erythema [Unknown]
  - Macular degeneration [Unknown]
  - Intestinal haemorrhage [Recovering/Resolving]
  - Eye disorder [Unknown]
  - Pyrexia [Unknown]

NARRATIVE: CASE EVENT DATE: 20120610
